FAERS Safety Report 22311663 (Version 3)
Quarter: 2024Q2

REPORT INFORMATION
  Report Type: Spontaneous
  Country: US (occurrence: US)
  Receive Date: 20230511
  Receipt Date: 20240506
  Transmission Date: 20240716
  Serious: No
  Sender: FDA-Public Use
  Company Number: US-SA-SAC20230510000055

PATIENT
  Age: 55 Year
  Sex: Female
  Weight: 112.2 kg

DRUGS (22)
  1. KEVZARA [Suspect]
     Active Substance: SARILUMAB
     Indication: Illness
     Dosage: 200 MG, QOW
     Route: 058
     Dates: start: 20220126
  2. KEVZARA [Suspect]
     Active Substance: SARILUMAB
     Indication: Type 2 diabetes mellitus
  3. KEVZARA [Suspect]
     Active Substance: SARILUMAB
     Indication: Chronic obstructive pulmonary disease
  4. KEVZARA [Suspect]
     Active Substance: SARILUMAB
     Indication: Essential hypertension
  5. KEVZARA [Suspect]
     Active Substance: SARILUMAB
     Indication: Rheumatoid arthritis
  6. KEVZARA [Suspect]
     Active Substance: SARILUMAB
     Indication: Major depression
  7. KEVZARA [Suspect]
     Active Substance: SARILUMAB
     Indication: Restless legs syndrome
  8. CIPRO [Concomitant]
     Active Substance: CIPROFLOXACIN HYDROCHLORIDE
     Dosage: UNK
  9. BIOTIN [Concomitant]
     Active Substance: BIOTIN
     Dosage: UNK
  10. VITAMIN D3 [Concomitant]
     Active Substance: CHOLECALCIFEROL
     Dosage: UNK
  11. ASPIRIN [Concomitant]
     Active Substance: ASPIRIN
     Dosage: UNK
  12. ATORVASTATIN CALCIUM [Concomitant]
     Active Substance: ATORVASTATIN CALCIUM
     Dosage: UNK
  13. NORTRIPTYLINE HYDROCHLORIDE [Concomitant]
     Active Substance: NORTRIPTYLINE HYDROCHLORIDE
     Dosage: UNK
  14. ALBUTEROL SULFATE [Concomitant]
     Active Substance: ALBUTEROL SULFATE
     Dosage: UNK
  15. TYLENOL ARTHRITIS PAIN [Concomitant]
     Active Substance: ACETAMINOPHEN
     Dosage: UNK
  16. JANUVIA [Concomitant]
     Active Substance: SITAGLIPTIN PHOSPHATE
     Dosage: UNK
  17. METOPROLOL TARTRATE [Concomitant]
     Active Substance: METOPROLOL TARTRATE
     Dosage: UNK
  18. GLIPIZIDE [Concomitant]
     Active Substance: GLIPIZIDE
     Dosage: 10 MG, QD
  19. GABAPENTIN [Concomitant]
     Active Substance: GABAPENTIN
     Dosage: UNK
  20. METFORMIN HYDROCHLORIDE [Concomitant]
     Active Substance: METFORMIN HYDROCHLORIDE
     Dosage: UNK
  21. MOUNJARO [Concomitant]
     Active Substance: TIRZEPATIDE
  22. LYRICA [Concomitant]
     Active Substance: PREGABALIN

REACTIONS (6)
  - Pain [Unknown]
  - General physical health deterioration [Unknown]
  - Skin ulcer [Unknown]
  - White blood cell count decreased [Recovered/Resolved]
  - Localised infection [Recovered/Resolved]
  - Product use in unapproved indication [Unknown]

NARRATIVE: CASE EVENT DATE: 20220126
